FAERS Safety Report 5872131-0 (Version None)
Quarter: 2008Q3

REPORT INFORMATION
  Report Type: 
  Country: None (occurrence: None)
  Receive Date: 20080905
  Receipt Date: 20080901
  Transmission Date: 20090109
  Serious: Yes (Death)
  Sender: FDA-Public Use
  Company Number: GB-TEVA-176750ISR

PATIENT
  Age: 75 Year
  Sex: Male

DRUGS (2)
  1. CARBAMAZEPINE [Suspect]
     Indication: COMPLEX PARTIAL SEIZURES
  2. VALPROIC ACID [Suspect]
     Indication: COMPLEX PARTIAL SEIZURES

REACTIONS (1)
  - MYOCARDIAL INFARCTION [None]
